FAERS Safety Report 7370761-0 (Version None)
Quarter: 2011Q1

REPORT INFORMATION
  Report Type: 
  Country: None (occurrence: None)
  Receive Date: 20110323
  Receipt Date: 20110323
  Transmission Date: 20110831
  Serious: Yes (Hospitalization, Other)
  Sender: FDA-Public Use
  Company Number: SG-BAYER-2011-025116

PATIENT
  Age: 15 Year
  Sex: Male

DRUGS (1)
  1. NIFEDIPINE CC 30 TABLET 30 MG [Suspect]

REACTIONS (2)
  - HEPATITIS [None]
  - TRANSAMINASES INCREASED [None]
